FAERS Safety Report 18781398 (Version 1)
Quarter: 2021Q1

REPORT INFORMATION
  Report Type: Spontaneous
  Country: US (occurrence: US)
  Receive Date: 20210124
  Receipt Date: 20210124
  Transmission Date: 20210419
  Serious: Yes (Hospitalization)
  Sender: FDA-Public Use
  Company Number: None

PATIENT
  Age: 41 Year
  Sex: Male
  Weight: 92.99 kg

DRUGS (2)
  1. LITHIUM (LITHIUM CARBONATE 300MG TAB, SA) [Suspect]
     Active Substance: LITHIUM CARBONATE
     Indication: POST-TRAUMATIC STRESS DISORDER
     Route: 048
     Dates: start: 20190618
  2. LITHIUM (LITHIUM CARBONATE 300MG TAB, SA) [Suspect]
     Active Substance: LITHIUM CARBONATE
     Indication: AFFECTIVE DISORDER
     Route: 048
     Dates: start: 20190618

REACTIONS (8)
  - Diarrhoea [None]
  - Wrong technique in product usage process [None]
  - Toxicity to various agents [None]
  - Nausea [None]
  - Abdominal pain [None]
  - Tremor [None]
  - Asthenia [None]
  - Vomiting [None]

NARRATIVE: CASE EVENT DATE: 20200715
